FAERS Safety Report 8360289-3 (Version None)
Quarter: 2012Q2

REPORT INFORMATION
  Report Type: 
  Country: None (occurrence: None)
  Receive Date: 20120515
  Receipt Date: 20120511
  Transmission Date: 20120825
  Serious: Yes (Other)
  Sender: FDA-Public Use
  Company Number: GB-JNJFOC-20120510878

PATIENT
  Age: 58 Year
  Sex: Female

DRUGS (9)
  1. AMOXICILLIN AND CLAVULANATE POTASSIUM [Concomitant]
     Route: 048
     Dates: start: 20120101
  2. SIMVASTATIN [Concomitant]
     Indication: HYPERCHOLESTEROLAEMIA
     Route: 048
     Dates: start: 20110101
  3. ETORICOXIB [Concomitant]
     Route: 048
     Dates: start: 20110101
  4. HUMULIN INSULIN [Concomitant]
     Indication: DIABETES MELLITUS
     Route: 058
     Dates: start: 20110101
  5. SENNA-MINT WAF [Concomitant]
     Indication: CONSTIPATION
     Route: 048
     Dates: start: 20110101
  6. ACETAMINOPHEN AND CODEINE PHOSPHATE [Concomitant]
     Indication: PAIN
     Route: 048
     Dates: start: 20110101
  7. ZOPICLONE [Concomitant]
     Route: 048
     Dates: start: 20120101
  8. NICOTINE [Suspect]
     Route: 062
  9. NICOTINE [Suspect]
     Indication: SMOKING CESSATION THERAPY
     Route: 062
     Dates: start: 20120412, end: 20120412

REACTIONS (4)
  - NAUSEA [None]
  - HEADACHE [None]
  - SYNCOPE [None]
  - DIPLOPIA [None]
